FAERS Safety Report 9366748 (Version 1)
Quarter: 2013Q2

REPORT INFORMATION
  Report Type: Spontaneous
  Country: US (occurrence: None)
  Receive Date: 20130620
  Receipt Date: 20130620
  Transmission Date: 20140414
  Serious: Yes (Life-Threatening, Hospitalization, Other)
  Sender: FDA-Public Use
  Company Number: US-ZYDUS-001440

PATIENT
  Age: 88 Year
  Sex: Male

DRUGS (1)
  1. AZATHIOPRINE [Suspect]
     Indication: INTERSTITIAL LUNG DISEASE

REACTIONS (4)
  - Drug reaction with eosinophilia and systemic symptoms [None]
  - Acute respiratory distress syndrome [None]
  - Shock [None]
  - Multi-organ failure [None]
